FAERS Safety Report 8787810 (Version 1)
Quarter: 2012Q4

REPORT INFORMATION
  Report Type: 
  Country: US (occurrence: US)
  Receive Date: 20120914
  Receipt Date: 20120914
  Transmission Date: 20130627
  Serious: Yes (Other)
  Sender: FDA-Public Use
  Company Number: US-VERTEX PHARMACEUTICAL INC.-AE-2012-007715

PATIENT
  Sex: Female
  Weight: 54.4 kg

DRUGS (3)
  1. INCIVEK [Suspect]
     Indication: HEPATITIS C
     Route: 048
     Dates: end: 20120524
  2. PEGASYS [Concomitant]
     Indication: HEPATITIS C
  3. RIBASPHERE [Concomitant]
     Indication: HEPATITIS C

REACTIONS (1)
  - Anaemia [Unknown]
